FAERS Safety Report 7520101-9 (Version None)
Quarter: 2011Q2

REPORT INFORMATION
  Report Type: 
  Country: None (occurrence: None)
  Receive Date: 20110602
  Receipt Date: 20110601
  Transmission Date: 20111010
  Serious: Yes (Death)
  Sender: FDA-Public Use
  Company Number: ZA-ROCHE-767575

PATIENT
  Sex: Female
  Weight: 63 kg

DRUGS (5)
  1. CAPECITABINE [Suspect]
     Indication: BREAST CANCER
     Dosage: CYCLICAL
     Route: 048
     Dates: start: 20110201, end: 20110222
  2. TRAMADOL HYDROCHLORIDE [Concomitant]
     Dates: start: 20110110
  3. MYCOSTATIN [Concomitant]
     Dates: start: 20101024
  4. VINFLUNINE [Suspect]
     Indication: BREAST CANCER
     Dosage: CYCLICAL
     Route: 042
     Dates: start: 20110201, end: 20110222
  5. ACETAMINOPHEN [Concomitant]
     Dates: start: 20110110

REACTIONS (1)
  - GENERAL PHYSICAL HEALTH DETERIORATION [None]
